FAERS Safety Report 19180471 (Version 1)
Quarter: 2021Q2

REPORT INFORMATION
  Report Type: Spontaneous
  Country: US (occurrence: US)
  Receive Date: 20210426
  Receipt Date: 20210426
  Transmission Date: 20210717
  Serious: No
  Sender: FDA-Public Use
  Company Number: US-BEH-2021131047

PATIENT
  Sex: Male

DRUGS (1)
  1. HIZENTRA [Suspect]
     Active Substance: HUMAN IMMUNOGLOBULIN G
     Indication: IMMUNODEFICIENCY COMMON VARIABLE
     Dosage: 18 GRAM, QW
     Route: 042
     Dates: start: 201903

REACTIONS (4)
  - No adverse event [Unknown]
  - Injection site reaction [Unknown]
  - Incorrect route of product administration [Unknown]
  - Recalled product administered [Unknown]
